FAERS Safety Report 23026602 (Version 2)
Quarter: 2023Q4

REPORT INFORMATION
  Report Type: Spontaneous
  Country: GB (occurrence: GB)
  Receive Date: 20231004
  Receipt Date: 20231030
  Transmission Date: 20240109
  Serious: Yes (Other)
  Sender: FDA-Public Use
  Company Number: None

PATIENT
  Age: 54 Year
  Sex: Male

DRUGS (1)
  1. METHOTREXATE [Suspect]
     Active Substance: METHOTREXATE
     Indication: Rheumatoid arthritis
     Dosage: 50MG;
     Dates: start: 202111

REACTIONS (4)
  - Illness [Unknown]
  - Pulmonary congestion [Unknown]
  - Echocardiogram [Unknown]
  - Bone pain [Unknown]
